FAERS Safety Report 4327465-8 (Version None)
Quarter: 2004Q1

REPORT INFORMATION
  Report Type: 
  Country: None (occurrence: None)
  Receive Date: 20040325
  Receipt Date: 20040312
  Transmission Date: 20041129
  Serious: Yes (Hospitalization)
  Sender: FDA-Public Use
  Company Number: TCI2004A00780

PATIENT
  Age: 54 Year
  Sex: Female

DRUGS (13)
  1. ACTOS [Suspect]
     Indication: DIABETES MELLITUS NON-INSULIN-DEPENDENT
     Dosage: 15 MG (15 MG, 1  D); PER ORAL
     Route: 048
     Dates: end: 20030920
  2. BASEN (VOGLIBOSE) [Suspect]
     Indication: DIABETES MELLITUS NON-INSULIN-DEPENDENT
     Dosage: 0.6 MG(0.6 MG, 1 D); PER ORAL
     Route: 048
     Dates: start: 20030610, end: 20030920
  3. DASEN (SERRAPEPTASE) [Concomitant]
  4. GLIMEPIRIDE [Concomitant]
  5. ATORVASTATIN [Concomitant]
  6. TRANEXAMIC ACID [Concomitant]
  7. LOXOPROFEN SODIUM [Concomitant]
  8. CEFDINER [Concomitant]
  9. EPRAZINONE HYDROCHLORIDE [Concomitant]
  10. AMBROXOL HYDROCHLORIDE [Concomitant]
  11. CLARITHROMYCIN [Concomitant]
  12. THEOPHYLLINE [Concomitant]
  13. CODEINE PHOSPHATE [Concomitant]

REACTIONS (13)
  - ABDOMINAL PAIN [None]
  - ANGINA UNSTABLE [None]
  - ARTERIOSCLEROSIS [None]
  - BUNDLE BRANCH BLOCK LEFT [None]
  - CORONARY ARTERY STENOSIS [None]
  - DIABETES MELLITUS INADEQUATE CONTROL [None]
  - ELECTROCARDIOGRAM POOR R-WAVE PROGRESSION [None]
  - ELECTROCARDIOGRAM ST SEGMENT DEPRESSION [None]
  - GASTRIC ULCER [None]
  - GASTRITIS [None]
  - MYOCARDIAL ISCHAEMIA [None]
  - OBESITY [None]
  - VENTRICULAR EXTRASYSTOLES [None]
